FAERS Safety Report 14584425 (Version 1)
Quarter: 2018Q1

REPORT INFORMATION
  Report Type: Spontaneous
  Country: US (occurrence: US)
  Receive Date: 20180301
  Receipt Date: 20180301
  Transmission Date: 20180509
  Serious: Yes (Hospitalization, Other)
  Sender: FDA-Public Use
  Company Number: US-AMGEN-USASP2018025911

PATIENT
  Sex: Female

DRUGS (4)
  1. LYRICA [Concomitant]
     Active Substance: PREGABALIN
  2. REPATHA [Suspect]
     Active Substance: EVOLOCUMAB
     Indication: CHRONIC OBSTRUCTIVE PULMONARY DISEASE
     Dosage: 420 MG/ 3.5 ML, QMO
     Route: 058
     Dates: start: 201701
  3. REPATHA [Suspect]
     Active Substance: EVOLOCUMAB
     Indication: HYPERCHOLESTEROLAEMIA
  4. TYLENOL WITH CODEIN #4 [Concomitant]

REACTIONS (2)
  - Off label use [Unknown]
  - Hospitalisation [Not Recovered/Not Resolved]
